FAERS Safety Report 10071251 (Version 1)
Quarter: 2014Q2

REPORT INFORMATION
  Report Type: Spontaneous
  Country: US (occurrence: US)
  Receive Date: 20140410
  Receipt Date: 20140410
  Transmission Date: 20141212
  Serious: No
  Sender: FDA-Public Use
  Company Number: US-SA-2013SA101321

PATIENT
  Age: 11 Year
  Sex: Male

DRUGS (1)
  1. ALLEGRA [Suspect]
     Indication: SEASONAL ALLERGY
     Dosage: TAKEN FROM- LESS THAN ONE YEAR
     Route: 048

REACTIONS (8)
  - Abdominal pain upper [Unknown]
  - Migraine [Unknown]
  - Oropharyngeal pain [Unknown]
  - Retching [Unknown]
  - Visual impairment [Unknown]
  - Decreased appetite [Unknown]
  - Food allergy [Unknown]
  - Headache [Unknown]
